FAERS Safety Report 9539408 (Version 1)
Quarter: 2013Q3

REPORT INFORMATION
  Report Type: Spontaneous
  Country: US (occurrence: US)
  Receive Date: 20130920
  Receipt Date: 20130920
  Transmission Date: 20140515
  Serious: Yes (Hospitalization, Other)
  Sender: FDA-Public Use
  Company Number: US-JNJFOC-20130905461

PATIENT
  Age: 80 Year
  Sex: Male
  Weight: 47.63 kg

DRUGS (15)
  1. DURAGESIC [Suspect]
     Indication: PRODUCT USED FOR UNKNOWN INDICATION
     Route: 062
     Dates: start: 20130909
  2. DURAGESIC [Suspect]
     Indication: PRODUCT USED FOR UNKNOWN INDICATION
     Route: 062
     Dates: start: 2006
  3. HYDROCODONE [Concomitant]
     Indication: PAIN
     Dosage: 5MG/325MG/??TABLET/5MG/325MG/AS NEEDED
     Route: 065
  4. LUPRON [Concomitant]
     Indication: OSTEOPOROSIS
     Route: 065
     Dates: start: 1990
  5. ASPIRIN [Concomitant]
     Indication: CARDIAC DISORDER
     Route: 048
  6. ATORVASTATIN [Concomitant]
     Indication: CARDIAC DISORDER
     Route: 048
     Dates: start: 201306
  7. CALCIUM CARBONATE [Concomitant]
     Route: 048
  8. CARVEDILOL [Concomitant]
     Indication: CARDIAC DISORDER
     Route: 048
  9. DONEPEZIL [Concomitant]
     Route: 048
  10. DULOXETINE [Concomitant]
     Indication: PRODUCT USED FOR UNKNOWN INDICATION
     Route: 048
  11. FUROSEMIDE [Concomitant]
     Dosage: 40MG/ EVERY OTHER DAY
     Route: 048
  12. GLIMEPIRIDE [Concomitant]
     Indication: DIABETES MELLITUS
     Route: 048
  13. INSULIN [Concomitant]
     Indication: DIABETES MELLITUS
     Route: 058
  14. METFORMIN [Concomitant]
     Indication: DIABETES MELLITUS
     Route: 048
  15. PANTOPRAZOLE [Concomitant]
     Route: 048

REACTIONS (14)
  - Hospitalisation [Unknown]
  - Osteoporosis [Not Recovered/Not Resolved]
  - Blood glucose fluctuation [Unknown]
  - Intervertebral disc compression [Unknown]
  - Musculoskeletal chest pain [Unknown]
  - Gastric ulcer haemorrhage [Recovered/Resolved]
  - Dehydration [Unknown]
  - Eating disorder [Unknown]
  - Fall [Recovered/Resolved]
  - Adverse event [Unknown]
  - Back pain [Recovered/Resolved]
  - Wound [Recovering/Resolving]
  - Expired drug administered [Unknown]
  - Somnolence [Recovering/Resolving]
